FAERS Safety Report 6738378-6 (Version None)
Quarter: 2010Q2

REPORT INFORMATION
  Report Type: 
  Country: None (occurrence: None)
  Receive Date: 20100524
  Receipt Date: 20100520
  Transmission Date: 20101027
  Serious: Yes (Death, Other)
  Sender: FDA-Public Use
  Company Number: GB-ELI_LILLY_AND_COMPANY-GB201005005233

PATIENT
  Age: 58 Year
  Sex: Male
  Weight: 92 kg

DRUGS (7)
  1. BYETTA [Suspect]
     Dosage: 10 UG, UNKNOWN
     Route: 058
  2. CIPROFIBRATE [Concomitant]
     Dosage: 100 MG, UNKNOWN
     Route: 048
     Dates: start: 19980101
  3. FELODIPINE [Concomitant]
     Indication: HYPERTENSION
     Dosage: 5 MG, UNKNOWN
     Route: 048
     Dates: start: 20060310
  4. FLUOXETINE [Concomitant]
     Dosage: UNK, UNKNOWN
     Route: 065
  5. LANTUS [Concomitant]
     Indication: TYPE 2 DIABETES MELLITUS
     Dosage: UNK, UNKNOWN
     Route: 058
     Dates: start: 20080207
  6. NOVORAPID [Concomitant]
     Dosage: UNK, UNKNOWN
     Route: 058
     Dates: start: 20080207
  7. RAMIPRIL [Concomitant]
     Dosage: UNK, UNKNOWN
     Route: 065

REACTIONS (5)
  - ARTHRITIS BACTERIAL [None]
  - OFF LABEL USE [None]
  - OSTEOMYELITIS [None]
  - SEPSIS [None]
  - SEPTIC SHOCK [None]
